FAERS Safety Report 20215824 (Version 1)
Quarter: 2021Q4

REPORT INFORMATION
  Report Type: Spontaneous
  Country: DE (occurrence: DE)
  Receive Date: 20211222
  Receipt Date: 20211222
  Transmission Date: 20220303
  Serious: Yes (Hospitalization)
  Sender: FDA-Public Use
  Company Number: DE-ADRED-07347-01

PATIENT
  Age: 45 Year
  Sex: Male
  Weight: 82 kg

DRUGS (8)
  1. AMIODARONE [Suspect]
     Active Substance: AMIODARONE
     Indication: Product used for unknown indication
     Dosage: 200 MILLIGRAM, ONCE A DAY (200 MG, 1-0-0-0, TABLETS)
     Route: 048
  2. PHENPROCOUMON [Suspect]
     Active Substance: PHENPROCOUMON
     Indication: Product used for unknown indication
     Dosage: UNK (3 MG, PAUSED, TABLETS)
     Route: 048
  3. EPLERENONE [Concomitant]
     Active Substance: EPLERENONE
     Indication: Product used for unknown indication
     Dosage: 25 MILLIGRAM, ONCE A DAY (25 MG, 1-0-0-0, TABLETS)
     Route: 048
  4. TORSEMIDE [Concomitant]
     Active Substance: TORSEMIDE
     Indication: Product used for unknown indication
     Dosage: 20 MILLIGRAM, ONCE A DAY (10 MG, 1-1-0-0, TABLETS)
     Route: 048
  5. BISOPROLOL [Concomitant]
     Active Substance: BISOPROLOL
     Indication: Product used for unknown indication
     Dosage: 1.25 MILLIGRAM, ONCE A DAY (2.5 MG, 0.5-0-0-0, TABLETS)
     Route: 048
  6. SACUBITRIL\VALSARTAN [Concomitant]
     Active Substance: SACUBITRIL\VALSARTAN
     Indication: Product used for unknown indication
     Dosage: 0.5 DOSAGE FORM, ONCE A DAY (24 | 26 MG, 0.5-0-0-0, TABLETS)
     Route: 048
  7. FERRO-SANOL DUODENAL [Concomitant]
     Active Substance: FERROUS GLYCINE SULFATE
     Indication: Product used for unknown indication
     Dosage: 50 MILLIGRAM, ONCE A DAY (50 MG, 1-0-0-0, SUSTAINED-RELEASE CAPSULES)
     Route: 048
  8. DAPAGLIFLOZIN [Concomitant]
     Active Substance: DAPAGLIFLOZIN
     Indication: Product used for unknown indication
     Dosage: 10 MILLIGRAM, ONCE A DAY (10 MG, 1-0-0-0, TABLETS)
     Route: 048

REACTIONS (2)
  - Anaemia [Unknown]
  - International normalised ratio abnormal [Unknown]
